FAERS Safety Report 6170974-X (Version None)
Quarter: 2009Q2

REPORT INFORMATION
  Report Type: 
  Country: None (occurrence: None)
  Receive Date: 20090427
  Receipt Date: 20090427
  Transmission Date: 20091009
  Serious: Yes (Hospitalization)
  Sender: FDA-Public Use
  Company Number: None

PATIENT
  Age: 26 Year
  Sex: Female
  Weight: 79.3795 kg

DRUGS (1)
  1. ULTRAM [Suspect]
     Indication: PAIN MANAGEMENT
     Dosage: 1 TWICE DAILY PO, ONLY ONE TAKEN
     Route: 048

REACTIONS (7)
  - ABDOMINAL PAIN UPPER [None]
  - DIZZINESS [None]
  - DRUG HYPERSENSITIVITY [None]
  - LOSS OF CONSCIOUSNESS [None]
  - MIGRAINE [None]
  - PARALYSIS [None]
  - SOMNOLENCE [None]
